FAERS Safety Report 4896544-9 (Version None)
Quarter: 2006Q1

REPORT INFORMATION
  Report Type: 
  Country: None (occurrence: None)
  Receive Date: 20060126
  Receipt Date: 20060117
  Transmission Date: 20060701
  Serious: Yes (Hospitalization, Disabling)
  Sender: FDA-Public Use
  Company Number: COV2-2005-00019

PATIENT
  Age: 83 Year
  Sex: Female
  Weight: 86 kg

DRUGS (17)
  1. FOSRENOL [Suspect]
     Indication: HYPERPHOSPHATAEMIA
     Dosage: SEE IMAGE
     Route: 048
     Dates: start: 20050225, end: 20050416
  2. FOSRENOL [Suspect]
     Indication: HYPERPHOSPHATAEMIA
     Dosage: SEE IMAGE
     Route: 048
     Dates: start: 20050418, end: 20050502
  3. AMOXICILLIN [Suspect]
     Indication: UPPER RESPIRATORY TRACT INFECTION
     Dosage: 500 MG  2X/DAY: BID, ORAL
     Route: 048
     Dates: start: 20050415, end: 20050416
  4. METOPROLOL (METOPROLOL) [Concomitant]
  5. MONOPRIL [Concomitant]
  6. FLUOXETINE [Concomitant]
  7. MEDROXYPROGESTERONE [Concomitant]
  8. PLAVIX [Concomitant]
  9. TRENTAL ^ALBERT-ROUSEL^ (PENTOXIFYLLINE) [Concomitant]
  10. LEVOXYL [Concomitant]
  11. ISOSORBIDE (ISOSORBIDE) [Concomitant]
  12. LIPITOR [Concomitant]
  13. VITAMIN E [Concomitant]
  14. ASPIRIN [Concomitant]
  15. NEPHROCAPS (FOLIC ACID, VITAMINS NOS) [Concomitant]
  16. FIBERCON (POLYCARBOPHIL CALCIUM) [Concomitant]
  17. TUMS [Concomitant]

REACTIONS (22)
  - AORTIC ARTERIOSCLEROSIS [None]
  - AORTIC VALVE INCOMPETENCE [None]
  - BALANCE DISORDER [None]
  - BLOOD CREATINE PHOSPHOKINASE INCREASED [None]
  - COMPUTERISED TOMOGRAM ABNORMAL [None]
  - CONFUSIONAL STATE [None]
  - CONTUSION [None]
  - DEMENTIA [None]
  - DIZZINESS [None]
  - FALL [None]
  - HAEMOPTYSIS [None]
  - HYPERSENSITIVITY [None]
  - MICROANGIOPATHY [None]
  - MOVEMENT DISORDER [None]
  - PACEMAKER COMPLICATION [None]
  - PALPITATIONS [None]
  - PSYCHOTIC DISORDER [None]
  - PULMONARY HYPERTENSION [None]
  - RIGHT VENTRICULAR FAILURE [None]
  - TRANSIENT ISCHAEMIC ATTACK [None]
  - TROPONIN INCREASED [None]
  - UPPER RESPIRATORY TRACT INFECTION [None]
